FAERS Safety Report 10330009 (Version 1)
Quarter: 2014Q3

REPORT INFORMATION
  Report Type: Report from Study
  Country: AU (occurrence: AU)
  Receive Date: 20140721
  Receipt Date: 20140721
  Transmission Date: 20150326
  Serious: Yes (Hospitalization, Other)
  Sender: FDA-Public Use
  Company Number: AU-GLAXOSMITHKLINE-B1016128A

PATIENT
  Age: 70 Year
  Sex: Male

DRUGS (1)
  1. DABRAFENIB [Suspect]
     Active Substance: DABRAFENIB
     Indication: METASTATIC MALIGNANT MELANOMA
     Dosage: 300MG PER DAY
     Dates: start: 20130612

REACTIONS (4)
  - Squamous cell carcinoma of skin [Recovered/Resolved with Sequelae]
  - Keratoacanthoma [Recovered/Resolved with Sequelae]
  - Pyrexia [Recovered/Resolved]
  - Basal cell carcinoma [Recovered/Resolved with Sequelae]

NARRATIVE: CASE EVENT DATE: 20131010
